FAERS Safety Report 16285176 (Version 1)
Quarter: 2019Q2

REPORT INFORMATION
  Report Type: Spontaneous
  Country: US (occurrence: US)
  Receive Date: 20190402
  Receipt Date: 20190402
  Transmission Date: 20190711
  Serious: Yes (Other)
  Sender: FDA-Public Use
  Company Number: None

PATIENT
  Age: 69 Year
  Sex: Male
  Weight: 122.47 kg

DRUGS (3)
  1. HEPARIN FLUSH, 100/ML, 5ML [Concomitant]
     Active Substance: HEPARIN SODIUM
  2. ERTAPENEM 1 GRAM [Suspect]
     Active Substance: ERTAPENEM
     Indication: OSTEOMYELITIS
     Route: 042
     Dates: start: 20190125
  3. N CL0,9% FLUSH, 10ML [Concomitant]

REACTIONS (2)
  - Wrong product administered [None]
  - Product dispensing error [None]

NARRATIVE: CASE EVENT DATE: 20190125
